FAERS Safety Report 4342554-X (Version None)
Quarter: 2004Q1

REPORT INFORMATION
  Report Type: 
  Country: None (occurrence: None)
  Receive Date: 20040213
  Receipt Date: 20031215
  Transmission Date: 20041129
  Serious: Yes (Other)
  Sender: FDA-Public Use
  Company Number: 354097

PATIENT
  Age: 45 Year
  Sex: Female

DRUGS (2)
  1. PEGASYS [Suspect]
     Indication: HEPATITIS C
     Dosage: ORAL
     Route: 048
     Dates: start: 20030515
  2. COPEGUS [Suspect]
     Indication: HEPATITIS C
     Dosage: ORAL
     Route: 048
     Dates: start: 20030515

REACTIONS (9)
  - ALOPECIA [None]
  - ASTHENIA [None]
  - HEPATIC PAIN [None]
  - HYPOKALAEMIA [None]
  - NAUSEA [None]
  - PERICARDIAL DISEASE [None]
  - SUICIDAL IDEATION [None]
  - WEIGHT [None]
  - WEIGHT DECREASED [None]
